FAERS Safety Report 6062579-6 (Version None)
Quarter: 2009Q1

REPORT INFORMATION
  Report Type: 
  Country: None (occurrence: None)
  Receive Date: 20090202
  Receipt Date: 20090202
  Transmission Date: 20090719
  Serious: Yes (Other)
  Sender: FDA-Public Use
  Company Number: None

PATIENT
  Age: 53 Year
  Sex: Female
  Weight: 58.0604 kg

DRUGS (2)
  1. WELLBUTRIN XL [Suspect]
     Indication: ANXIETY
     Dosage: 150MG 2 PO
     Route: 048
     Dates: start: 20080617, end: 20080719
  2. WELLBUTRIN XL [Suspect]
     Indication: DEPRESSION
     Dosage: 150MG 2 PO
     Route: 048
     Dates: start: 20080617, end: 20080719

REACTIONS (7)
  - ANXIETY [None]
  - DEPRESSION [None]
  - DYSPEPSIA [None]
  - FEELING ABNORMAL [None]
  - NAUSEA [None]
  - PRODUCT QUALITY ISSUE [None]
  - SUICIDAL BEHAVIOUR [None]
